FAERS Safety Report 7884665-8 (Version None)
Quarter: 2011Q4

REPORT INFORMATION
  Report Type: 
  Country: None (occurrence: None)
  Receive Date: 20111102
  Receipt Date: 20111031
  Transmission Date: 20120403
  Serious: Yes (Other)
  Sender: FDA-Public Use
  Company Number: US-MERCK-1111USA00074

PATIENT
  Sex: Female

DRUGS (3)
  1. FOSAMAX [Suspect]
     Route: 048
     Dates: start: 20010101, end: 20091001
  2. BONIVA [Suspect]
     Route: 065
     Dates: start: 20010101, end: 20091001
  3. FOSAMAX [Suspect]
     Route: 048
     Dates: start: 20010101, end: 20091001

REACTIONS (1)
  - FEMUR FRACTURE [None]
